FAERS Safety Report 12961036 (Version 1)
Quarter: 2016Q4

REPORT INFORMATION
  Report Type: Spontaneous
  Country: JP (occurrence: JP)
  Receive Date: 20161121
  Receipt Date: 20161121
  Transmission Date: 20170207
  Serious: Yes (Death)
  Sender: FDA-Public Use
  Company Number: JP-VALIDUS PHARMACEUTICALS LLC-JP-2016VAL003016

PATIENT
  Age: 81 Year
  Sex: Male

DRUGS (4)
  1. AZOSEMIDE [Suspect]
     Active Substance: AZOSEMIDE
     Indication: ASCITES
     Dosage: UNK
  2. FUROSEMIDE. [Suspect]
     Active Substance: FUROSEMIDE
     Indication: ASCITES
     Dosage: UNK
  3. SPIRONOLACTONE. [Suspect]
     Active Substance: SPIRONOLACTONE
     Indication: ASCITES
     Dosage: UNK
  4. TOLVAPTAN [Suspect]
     Active Substance: TOLVAPTAN
     Indication: ASCITES
     Dosage: UNK

REACTIONS (3)
  - Blood disorder [Fatal]
  - Hypercoagulation [Fatal]
  - Haemorrhagic infarction [Fatal]
